FAERS Safety Report 19962668 (Version 6)
Quarter: 2022Q1

REPORT INFORMATION
  Report Type: Report from Study
  Country: BR (occurrence: BR)
  Receive Date: 20211018
  Receipt Date: 20220113
  Transmission Date: 20220424
  Serious: Yes (Other)
  Sender: FDA-Public Use
  Company Number: NVSC2021BR232925

PATIENT
  Age: 79 Year
  Sex: Female
  Weight: 54 kg

DRUGS (9)
  1. BROLUCIZUMAB [Suspect]
     Active Substance: BROLUCIZUMAB
     Indication: Age-related macular degeneration
     Dosage: UNK
     Route: 065
     Dates: start: 20210928
  2. BROLUCIZUMAB [Suspect]
     Active Substance: BROLUCIZUMAB
     Dosage: UNK
     Route: 031
     Dates: start: 20211103
  3. SYNTHROID [Concomitant]
     Active Substance: LEVOTHYROXINE SODIUM
     Indication: Thyroid operation
     Dosage: 112 MG FROM MONDAY TO FRIDAY ABOUT 8 OR 9
     Route: 065
  4. SYNTHROID [Concomitant]
     Active Substance: LEVOTHYROXINE SODIUM
     Dosage: 100 MG FROM SATURDAY TO SUNDAY ABOUT 8 OR 9
     Route: 065
  5. IMMENSE [Concomitant]
     Indication: Blood pressure inadequately controlled
     Dosage: 50 MG, QD ABOUT 3
     Route: 048
  6. CHOLECALCIFEROL [Concomitant]
     Active Substance: CHOLECALCIFEROL
     Indication: Vitamin D deficiency
     Dosage: 5000 UL, QD ABOUT 5 YEARS AGO
     Route: 048
  7. SINVALIP [Concomitant]
     Indication: Blood cholesterol abnormal
     Dosage: 20 MG, QD ABOUT 4 OR 5 YEARS AGO
     Route: 065
  8. OFTPRED [Concomitant]
     Indication: Product used for unknown indication
     Dosage: UNK
     Route: 065
  9. CETROLAC [Concomitant]
     Indication: Product used for unknown indication
     Dosage: UNK
     Route: 065

REACTIONS (12)
  - Photophobia [Recovered/Resolved]
  - Vision blurred [Recovered/Resolved]
  - Visual impairment [Recovered/Resolved]
  - Visual acuity reduced [Recovered/Resolved]
  - Vision blurred [Recovered/Resolved]
  - Dizziness [Unknown]
  - Metamorphopsia [Unknown]
  - Visual field defect [Unknown]
  - Nervousness [Unknown]
  - Vision blurred [Unknown]
  - Visual acuity reduced [Unknown]
  - Visual impairment [Unknown]

NARRATIVE: CASE EVENT DATE: 20210929
